FAERS Safety Report 20362032 (Version 1)
Quarter: 2022Q1

REPORT INFORMATION
  Report Type: Spontaneous
  Country: FR (occurrence: FR)
  Receive Date: 20220121
  Receipt Date: 20220121
  Transmission Date: 20220424
  Serious: Yes (Hospitalization, Other)
  Sender: FDA-Public Use
  Company Number: None

PATIENT
  Age: 61 Year
  Sex: Male
  Weight: 66.2 kg

DRUGS (9)
  1. COMIRNATY [Suspect]
     Active Substance: TOZINAMERAN
     Indication: COVID-19 immunisation
     Dosage: DOSE 3 (BOOSTER), SINGLE
     Route: 030
     Dates: start: 20210611, end: 20210611
  2. COMIRNATY [Suspect]
     Active Substance: TOZINAMERAN
     Dosage: DOSE 2,SINGLE
     Route: 030
     Dates: start: 20210514, end: 20210514
  3. COMIRNATY [Suspect]
     Active Substance: TOZINAMERAN
     Dosage: DOSE 1, SINGLE
     Route: 030
     Dates: start: 20210416, end: 20210416
  4. METHOTREXATE [Suspect]
     Active Substance: METHOTREXATE
     Indication: Rheumatoid arthritis
     Dosage: TRAITEMENT HABITUEL
     Route: 058
     Dates: end: 20211211
  5. RITUXIMAB [Suspect]
     Active Substance: RITUXIMAB
     Indication: Rheumatoid arthritis
     Dosage: UNK
     Route: 041
     Dates: start: 202103, end: 20211102
  6. ESOMEPRAZOLE MAGNESIUM [Concomitant]
     Active Substance: ESOMEPRAZOLE MAGNESIUM
     Indication: Gastritis prophylaxis
     Dosage: 40 MG
     Route: 048
  7. PREDNISONE [Concomitant]
     Active Substance: PREDNISONE
     Indication: Rheumatoid arthritis
     Dosage: 10 MG, DAILY
     Route: 048
  8. POTASSIUM CHLORIDE [Concomitant]
     Active Substance: POTASSIUM CHLORIDE
     Indication: Mineral supplementation
     Dosage: 600 MG, DAILY
     Route: 048
  9. ACETAMINOPHEN [Concomitant]
     Active Substance: ACETAMINOPHEN
     Dosage: UNK UNK, AS NEEDED

REACTIONS (13)
  - Vaccination failure [Recovered/Resolved]
  - COVID-19 pneumonia [Recovered/Resolved]
  - Loss of consciousness [Unknown]
  - Multisystem inflammatory syndrome [Unknown]
  - Febrile neutropenia [Unknown]
  - Asthenia [Unknown]
  - Influenza like illness [Unknown]
  - Malaise [Unknown]
  - Dizziness [Unknown]
  - Hyperhidrosis [Unknown]
  - Hyperthermia [Unknown]
  - Oxygen therapy [Unknown]
  - Cough [Unknown]

NARRATIVE: CASE EVENT DATE: 20211127
